FAERS Safety Report 25033305 (Version 1)
Quarter: 2025Q1

REPORT INFORMATION
  Report Type: Spontaneous
  Country: RU (occurrence: RU)
  Receive Date: 20250303
  Receipt Date: 20250303
  Transmission Date: 20250409
  Serious: Yes (Life-Threatening)
  Sender: ELI LILLY AND COMPANY
  Company Number: RU-ELI_LILLY_AND_COMPANY-RU202502019172

PATIENT
  Age: 45 Year
  Sex: Female

DRUGS (1)
  1. HUMALOG [Suspect]
     Active Substance: INSULIN LISPRO
     Indication: Product used for unknown indication
     Dosage: 45 INTERNATIONAL UNIT, DAILY
     Route: 058
     Dates: start: 20190213, end: 20190604

REACTIONS (1)
  - Diabetic metabolic decompensation [Recovering/Resolving]
